FAERS Safety Report 5355935-2 (Version None)
Quarter: 2007Q2

REPORT INFORMATION
  Report Type: 
  Country: None (occurrence: None)
  Receive Date: 20070613
  Receipt Date: 20070605
  Transmission Date: 20071010
  Serious: Yes (Hospitalization)
  Sender: FDA-Public Use
  Company Number: IT-ABBOTT-06P-083-0354439-00

PATIENT
  Sex: Female

DRUGS (14)
  1. CLARITHROMYCIN [Suspect]
     Indication: HAEMOPHILUS INFECTION
  2. SIROLIMUS [Interacting]
     Indication: IMMUNOSUPPRESSION
  3. SIROLIMUS [Interacting]
     Dates: start: 20030501
  4. SIROLIMUS [Interacting]
  5. CARVEDILOL [Concomitant]
     Indication: DRUG USE FOR UNKNOWN INDICATION
  6. GLYCERYL TRINITRATE [Concomitant]
     Indication: DRUG USE FOR UNKNOWN INDICATION
  7. GLYCERYL TRINITRATE [Concomitant]
     Dates: start: 20010101
  8. CALCITRIOL [Concomitant]
     Indication: DRUG USE FOR UNKNOWN INDICATION
  9. OMEPRAZOLE [Concomitant]
     Indication: DRUG USE FOR UNKNOWN INDICATION
     Dates: start: 20010101
  10. DARBEPOETIN [Concomitant]
     Indication: DRUG USE FOR UNKNOWN INDICATION
  11. DARBEPOETIN [Concomitant]
     Dates: start: 20010101
  12. SODIUM BICARBONATE [Concomitant]
     Indication: DRUG USE FOR UNKNOWN INDICATION
  13. PREDNISONE TAB [Concomitant]
     Indication: DRUG USE FOR UNKNOWN INDICATION
     Dates: start: 20010101
  14. PREDNISONE TAB [Concomitant]
     Dates: start: 20030501

REACTIONS (3)
  - DRUG INTERACTION [None]
  - DRUG LEVEL INCREASED [None]
  - RENAL IMPAIRMENT [None]
